FAERS Safety Report 5675999-6 (Version None)
Quarter: 2008Q2

REPORT INFORMATION
  Report Type: 
  Country: None (occurrence: None)
  Receive Date: 20080310
  Receipt Date: 20071203
  Transmission Date: 20081010
  Serious: Yes (Other)
  Sender: FDA-Public Use
  Company Number: 07-518

PATIENT
  Age: 72 Year
  Sex: Female
  Weight: 72.5755 kg

DRUGS (2)
  1. ALEVE [Suspect]
     Indication: ARTHRITIS
     Dosage: 220 MG, DAILY, ORAL
     Route: 048
     Dates: start: 20071105, end: 20071126
  2. WATER PILLS [Concomitant]

REACTIONS (2)
  - HAEMATEMESIS [None]
  - STOMACH DISCOMFORT [None]
